FAERS Safety Report 16677660 (Version 1)
Quarter: 2019Q3

REPORT INFORMATION
  Report Type: Spontaneous
  Country: DE (occurrence: DE)
  Receive Date: 20190807
  Receipt Date: 20190807
  Transmission Date: 20191004
  Serious: Yes (Other)
  Sender: FDA-Public Use
  Company Number: DE-TEVA-2019-DE-1087890

PATIENT
  Age: 60 Year
  Sex: Female

DRUGS (24)
  1. CEFTRIAXONE. [Suspect]
     Active Substance: CEFTRIAXONE
     Indication: PSEUDOMONAS INFECTION
  2. OFLOXACIN. [Suspect]
     Active Substance: OFLOXACIN
     Indication: SERRATIA INFECTION
  3. ACETAZOLAMIDE. [Suspect]
     Active Substance: ACETAZOLAMIDE
     Indication: PSEUDOMONAS INFECTION
  4. CEFTRIAXONE. [Suspect]
     Active Substance: CEFTRIAXONE
     Indication: ULCERATIVE KERATITIS
     Route: 042
  5. OFLOXACIN. [Suspect]
     Active Substance: OFLOXACIN
     Indication: PSEUDOMONAS INFECTION
  6. ACETAZOLAMIDE. [Suspect]
     Active Substance: ACETAZOLAMIDE
     Indication: ULCERATIVE KERATITIS
     Route: 048
  7. CLINDAMYCIN. [Suspect]
     Active Substance: CLINDAMYCIN
     Indication: PSEUDOMONAS INFECTION
  8. POLYMYXINB/NEOMYCIN/GRAMICIDIN [Suspect]
     Active Substance: GRAMICIDIN\NEOMYCIN\POLYMYXIN B SULFATE
     Indication: ULCERATIVE KERATITIS
     Route: 050
  9. CYCLOPENTOLATE. [Suspect]
     Active Substance: CYCLOPENTOLATE
     Indication: PSEUDOMONAS INFECTION
  10. POLYHEXANIDE [Suspect]
     Active Substance: POLIHEXANIDE
     Indication: ULCERATIVE KERATITIS
     Route: 050
  11. PROPAMIDINE ISETHIONATE [Suspect]
     Active Substance: PROPAMIDINE ISETHIONATE
     Indication: ULCERATIVE KERATITIS
     Route: 050
  12. ACETAZOLAMIDE. [Suspect]
     Active Substance: ACETAZOLAMIDE
     Indication: SERRATIA INFECTION
  13. POLYMYXINB/NEOMYCIN/GRAMICIDIN [Suspect]
     Active Substance: GRAMICIDIN\NEOMYCIN\POLYMYXIN B SULFATE
     Indication: SERRATIA INFECTION
  14. CYCLOPENTOLATE. [Suspect]
     Active Substance: CYCLOPENTOLATE
     Indication: ULCERATIVE KERATITIS
     Route: 050
  15. CEFTRIAXONE. [Suspect]
     Active Substance: CEFTRIAXONE
     Indication: SERRATIA INFECTION
  16. CLINDAMYCIN. [Suspect]
     Active Substance: CLINDAMYCIN
     Indication: SERRATIA INFECTION
  17. POLYMYXINB/NEOMYCIN/GRAMICIDIN [Suspect]
     Active Substance: GRAMICIDIN\NEOMYCIN\POLYMYXIN B SULFATE
     Indication: PSEUDOMONAS INFECTION
  18. CLINDAMYCIN. [Suspect]
     Active Substance: CLINDAMYCIN
     Indication: ULCERATIVE KERATITIS
     Route: 042
  19. OFLOXACIN. [Suspect]
     Active Substance: OFLOXACIN
     Indication: ULCERATIVE KERATITIS
     Route: 050
  20. POLYHEXANIDE [Suspect]
     Active Substance: POLIHEXANIDE
     Indication: PSEUDOMONAS INFECTION
  21. POLYHEXANIDE [Suspect]
     Active Substance: POLIHEXANIDE
     Indication: SERRATIA INFECTION
  22. PROPAMIDINE ISETHIONATE [Suspect]
     Active Substance: PROPAMIDINE ISETHIONATE
     Indication: PSEUDOMONAS INFECTION
  23. PROPAMIDINE ISETHIONATE [Suspect]
     Active Substance: PROPAMIDINE ISETHIONATE
     Indication: SERRATIA INFECTION
  24. CYCLOPENTOLATE. [Suspect]
     Active Substance: CYCLOPENTOLATE
     Indication: SERRATIA INFECTION

REACTIONS (1)
  - Drug ineffective [Unknown]
